FAERS Safety Report 9043138 (Version 1)
Quarter: 2013Q1

REPORT INFORMATION
  Report Type: Report from Study
  Country: US (occurrence: US)
  Receive Date: 20130129
  Receipt Date: 20130129
  Transmission Date: 20140127
  Serious: Yes (Other)
  Sender: FDA-Public Use
  Company Number: US-ABBOTT-12P-163-0901522-00

PATIENT
  Age: 76 Year
  Sex: Female

DRUGS (6)
  1. HUMIRA 40 MG/0.8 ML PEN [Suspect]
     Indication: CROHN^S DISEASE
     Dates: start: 20120127
  2. HUMIRA 40 MG/0.8 ML PEN [Suspect]
  3. APRISO [Concomitant]
     Indication: COLITIS ULCERATIVE
  4. RAMIPRIL [Concomitant]
     Indication: HYPERTENSION
     Dosage: 0.25 MG DAILY
  5. MULTIVITAMIN [Concomitant]
     Indication: PRODUCT USED FOR UNKNOWN INDICATION
     Dosage: DAILY
  6. CALCIUM [Concomitant]
     Indication: MINERAL SUPPLEMENTATION
     Dosage: DAILY

REACTIONS (2)
  - Back pain [Not Recovered/Not Resolved]
  - Injection site haemorrhage [Unknown]
